FAERS Safety Report 11467959 (Version 2)
Quarter: 2015Q3

REPORT INFORMATION
  Report Type: Report from Study
  Country: US (occurrence: US)
  Receive Date: 20150908
  Receipt Date: 20150916
  Transmission Date: 20151125
  Serious: Yes (Hospitalization, Other)
  Sender: FDA-Public Use
  Company Number: US-AMGEN-USASP2015090915

PATIENT
  Age: 41 Year
  Sex: Female

DRUGS (1)
  1. ARANESP [Suspect]
     Active Substance: DARBEPOETIN ALFA
     Indication: NEPHROGENIC ANAEMIA
     Dosage: 60 MCG/0.3ML, TWICE A MONTH
     Route: 065

REACTIONS (4)
  - Uterine polyp [Unknown]
  - Haemoglobin decreased [Unknown]
  - Vaginal haemorrhage [Recovered/Resolved]
  - Ovarian cyst [Unknown]
